FAERS Safety Report 4859210-1 (Version None)
Quarter: 2005Q4

REPORT INFORMATION
  Report Type: 
  Country: None (occurrence: None)
  Receive Date: 20051219
  Receipt Date: 20050927
  Transmission Date: 20060501
  Serious: No
  Sender: FDA-Public Use
  Company Number: US-GLAXOSMITHKLINE-A0576029A

PATIENT
  Age: 41 Year
  Sex: Female

DRUGS (1)
  1. TARGET NTS 14MG [Suspect]
     Dates: start: 20050924, end: 20050926

REACTIONS (2)
  - INSOMNIA [None]
  - PSYCHOMOTOR HYPERACTIVITY [None]
